FAERS Safety Report 17048240 (Version 1)
Quarter: 2019Q4

REPORT INFORMATION
  Report Type: Spontaneous
  Country: US (occurrence: US)
  Receive Date: 20191118
  Receipt Date: 20191118
  Transmission Date: 20200122
  Serious: Yes (Life-Threatening, Hospitalization, Disabling)
  Sender: FDA-Public Use
  Company Number: None

PATIENT
  Age: 16 Year
  Sex: Male
  Weight: 51.9 kg

DRUGS (1)
  1. TRIMETHOPRIM-SULFAMETHOXAZOLE [Suspect]
     Active Substance: SULFAMETHOXAZOLE\TRIMETHOPRIM
     Indication: ACNE
     Route: 048
     Dates: start: 20180830, end: 20180927

REACTIONS (6)
  - Pneumothorax [None]
  - Acute respiratory distress syndrome [None]
  - Lung assist device therapy [None]
  - Haemothorax [None]
  - Acute kidney injury [None]
  - Tracheostomy [None]

NARRATIVE: CASE EVENT DATE: 20180927
